FAERS Safety Report 11009796 (Version 1)
Quarter: 2015Q2

REPORT INFORMATION
  Report Type: Spontaneous
  Country: US (occurrence: None)
  Receive Date: 20150409
  Receipt Date: 20150409
  Transmission Date: 20150821
  Serious: No
  Sender: FDA-Public Use
  Company Number: None

PATIENT
  Age: 59 Year
  Sex: Female

DRUGS (8)
  1. GLEEVEC [Suspect]
     Active Substance: IMATINIB MESYLATE
     Indication: NEOPLASM MALIGNANT
     Route: 048
     Dates: start: 20150317
  2. TRANSDERM SCOP [Concomitant]
     Active Substance: SCOPOLAMINE
  3. ATENOLOL. [Concomitant]
     Active Substance: ATENOLOL
  4. LOTEMAX [Concomitant]
     Active Substance: LOTEPREDNOL ETABONATE
  5. VITAMIN D3 [Concomitant]
     Active Substance: CHOLECALCIFEROL
  6. TACLONEX SUSPENSION [Concomitant]
  7. FAMOTIDINE. [Concomitant]
     Active Substance: FAMOTIDINE
  8. PREMARIN VAGINAL [Concomitant]
     Active Substance: ESTROGENS, CONJUGATED

REACTIONS (2)
  - Swelling face [None]
  - Vomiting [None]
